FAERS Safety Report 9067716 (Version 1)
Quarter: 2013Q1

REPORT INFORMATION
  Report Type: Report from Study
  Country: None (occurrence: DE)
  Receive Date: 20130128
  Receipt Date: 20130128
  Transmission Date: 20140127
  Serious: Yes (Death, Hospitalization)
  Sender: FDA-Public Use
  Company Number: DE-BRISTOL-MYERS SQUIBB COMPANY-17318940

PATIENT
  Age: 65 Year
  Sex: Female
  Weight: 87 kg

DRUGS (5)
  1. ERBITUX SOLN FOR INF [Suspect]
     Indication: COLORECTAL CANCER METASTATIC
     Dosage: 26APR12-10MAY12: 250 MG/M2,RECENT INF:14MAY12
     Route: 042
     Dates: start: 20120419, end: 20120514
  2. 5-FLUOROURACIL [Concomitant]
     Indication: COLORECTAL CANCER METASTATIC
     Route: 042
     Dates: start: 20120419, end: 20120514
  3. FOLINIC ACID [Concomitant]
     Indication: COLORECTAL CANCER METASTATIC
     Route: 042
     Dates: start: 20120419, end: 20120514
  4. OXALIPLATIN [Concomitant]
     Indication: COLORECTAL CANCER METASTATIC
     Route: 042
     Dates: start: 20120419, end: 20120514
  5. CORTICOSTEROID [Concomitant]
     Indication: PREMEDICATION
     Route: 042
     Dates: start: 20120419

REACTIONS (1)
  - Pulmonary embolism [None]
